FAERS Safety Report 8419843-2 (Version None)
Quarter: 2012Q2

REPORT INFORMATION
  Report Type: 
  Country: None (occurrence: None)
  Receive Date: 20120607
  Receipt Date: 20120529
  Transmission Date: 20120825
  Serious: Yes (Other)
  Sender: FDA-Public Use
  Company Number: IE-GILEAD-2012-0056104

PATIENT
  Age: 73 Year
  Sex: Male

DRUGS (1)
  1. RANOLAZINE [Suspect]
     Indication: DYSPNOEA EXERTIONAL
     Dosage: 750 MG, QD
     Route: 048
     Dates: start: 20120420, end: 20120508

REACTIONS (3)
  - SOMNOLENCE [None]
  - OFF LABEL USE [None]
  - AMNESIA [None]
